FAERS Safety Report 12924921 (Version 2)
Quarter: 2016Q4

REPORT INFORMATION
  Report Type: Report from Study
  Country: US (occurrence: US)
  Receive Date: 20161108
  Receipt Date: 20161118
  Transmission Date: 20170207
  Serious: Yes (Hospitalization)
  Sender: FDA-Public Use
  Company Number: US-ACTELION-A-US2016-145118

PATIENT
  Age: 53 Year
  Sex: Female

DRUGS (15)
  1. ATENOLOL. [Concomitant]
     Active Substance: ATENOLOL
  2. DIGOXIN. [Concomitant]
     Active Substance: DIGOXIN
  3. LASIX [Concomitant]
     Active Substance: FUROSEMIDE
  4. CIALIS [Concomitant]
     Active Substance: TADALAFIL
  5. OPSUMIT [Suspect]
     Active Substance: MACITENTAN
     Indication: PULMONARY ARTERIAL HYPERTENSION
     Dosage: 10 MG, QD
     Route: 048
     Dates: start: 20150421
  6. PRILOSEC [Concomitant]
     Active Substance: OMEPRAZOLE MAGNESIUM
  7. URSODIOL. [Concomitant]
     Active Substance: URSODIOL
  8. MAGNESIUM [Concomitant]
     Active Substance: MAGNESIUM
  9. ADEMPAS [Concomitant]
     Active Substance: RIOCIGUAT
  10. ADCIRCA [Concomitant]
     Active Substance: TADALAFIL
  11. LORAZEPAM. [Concomitant]
     Active Substance: LORAZEPAM
  12. VELETRI [Suspect]
     Active Substance: EPOPROSTENOL
     Indication: PULMONARY ARTERIAL HYPERTENSION
     Dosage: 36 NG/KG, PER MIN
     Route: 042
     Dates: start: 20160718
  13. SPIRONOLACTONE. [Concomitant]
     Active Substance: SPIRONOLACTONE
  14. KCL [Concomitant]
     Active Substance: POTASSIUM CHLORIDE
  15. REMODULIN [Concomitant]
     Active Substance: TREPROSTINIL

REACTIONS (2)
  - Bacterial infection [Unknown]
  - Gastric infection [Unknown]

NARRATIVE: CASE EVENT DATE: 20161018
